FAERS Safety Report 4422136-1 (Version None)
Quarter: 2004Q3

REPORT INFORMATION
  Report Type: 
  Country: None (occurrence: None)
  Receive Date: 20040805
  Receipt Date: 20040728
  Transmission Date: 20050211
  Serious: Yes (Disabling)
  Sender: FDA-Public Use
  Company Number: HQWYE066606MAY03

PATIENT
  Age: 65 Year
  Sex: Female

DRUGS (2)
  1. DIMETAPP [Suspect]
     Indication: NASOPHARYNGITIS
     Dosage: ORAL
     Route: 048
     Dates: start: 19910201, end: 19910201
  2. BC (ACETYLSALICYLIC ACID/CAFFEINE/SALICYLAMIDE, POWDER) [Suspect]
     Indication: NASOPHARYNGITIS
     Dosage: ORAL
     Route: 048
     Dates: start: 19910201, end: 19910201

REACTIONS (1)
  - CEREBROVASCULAR ACCIDENT [None]
